FAERS Safety Report 15005537 (Version 2)
Quarter: 2018Q3

REPORT INFORMATION
  Report Type: Report from Study
  Country: US (occurrence: US)
  Receive Date: 20180613
  Receipt Date: 20180704
  Transmission Date: 20181010
  Serious: Yes (Hospitalization, Other)
  Sender: FDA-Public Use
  Company Number: US-REGENERON PHARMACEUTICALS, INC.-2018-25637

PATIENT

DRUGS (1)
  1. EYLEA [Suspect]
     Active Substance: AFLIBERCEPT
     Indication: MACULAR OEDEMA
     Dosage: 0.500 MG, UNK
     Route: 031
     Dates: start: 20150923

REACTIONS (3)
  - Complications of transplanted kidney [Recovered/Resolved]
  - Complications of transplanted pancreas [Recovered/Resolved]
  - Cataract [Unknown]
